FAERS Safety Report 9105330 (Version 1)
Quarter: 2013Q1

REPORT INFORMATION
  Report Type: Spontaneous
  Country: NL (occurrence: NL)
  Receive Date: 20130220
  Receipt Date: 20130220
  Transmission Date: 20140127
  Serious: Yes (Life-Threatening, Hospitalization)
  Sender: FDA-Public Use
  Company Number: NL-BRISTOL-MYERS SQUIBB COMPANY-17377458

PATIENT
  Age: 53 Year
  Sex: Female

DRUGS (7)
  1. ETOPOSIDE [Suspect]
     Indication: NEUROENDOCRINE TUMOUR
     Dosage: A LATENCY OF 8 DAYS
  2. CISPLATIN [Suspect]
     Indication: NEUROENDOCRINE TUMOUR
  3. MAGNESIUM HYDROXIDE [Concomitant]
  4. ENALAPRIL [Concomitant]
  5. APREPITANT [Concomitant]
  6. DEXAMETHASONE [Concomitant]
     Dosage: 4MG/ML
  7. MESALAZINE [Concomitant]

REACTIONS (1)
  - Arterial thrombosis [Recovered/Resolved with Sequelae]
